FAERS Safety Report 13067585 (Version 3)
Quarter: 2017Q1

REPORT INFORMATION
  Report Type: Spontaneous
  Country: JP (occurrence: JP)
  Receive Date: 20161228
  Receipt Date: 20170308
  Transmission Date: 20170428
  Serious: Yes (Death, Life-Threatening, Other)
  Sender: FDA-Public Use
  Company Number: JP-ROCHE-1872717

PATIENT
  Age: 76 Year
  Sex: Male
  Weight: 53 kg

DRUGS (4)
  1. RHEUMATREX [Suspect]
     Active Substance: METHOTREXATE SODIUM
     Indication: RHEUMATOID ARTHRITIS
     Dosage: DATE OF MOST RECENT DOSE:/DEC/2013
     Route: 048
     Dates: start: 201011
  2. PREDONINE [Concomitant]
     Active Substance: PREDNISOLONE
     Dosage: THE FRACTIONATION DOSE FREQUENCY IS UNCERTAIN. ?DOSE INTERVAL UNCERTAINTY
     Route: 065
     Dates: start: 201011, end: 201511
  3. ACTEMRA [Suspect]
     Active Substance: TOCILIZUMAB
     Indication: RHEUMATOID ARTHRITIS
     Dosage: DOSAGE IS UNCERTAIN.
     Route: 041
     Dates: start: 201407
  4. RHEUMATREX [Suspect]
     Active Substance: METHOTREXATE SODIUM
     Indication: RHEUMATOID ARTHRITIS
     Dosage: THE FRACTIONATION DOSE FREQUENCY IS UNCERTAIN.
     Route: 048
     Dates: start: 201401

REACTIONS (6)
  - Infectious pleural effusion [Fatal]
  - Spinal compression fracture [Unknown]
  - Pneumonia [Unknown]
  - Staphylococcus test positive [Unknown]
  - Metastatic carcinoma of the bladder [Unknown]
  - Infective spondylitis [Fatal]

NARRATIVE: CASE EVENT DATE: 20160511
